FAERS Safety Report 8313826-9 (Version None)
Quarter: 2012Q2

REPORT INFORMATION
  Report Type: 
  Country: None (occurrence: None)
  Receive Date: 20120426
  Receipt Date: 20120417
  Transmission Date: 20120825
  Serious: Yes (Other)
  Sender: FDA-Public Use
  Company Number: CA-JNJFOC-20120404320

PATIENT
  Sex: Female
  Weight: 47 kg

DRUGS (5)
  1. PANTOPRAZOLE SODIUM [Concomitant]
  2. VENTOLIN [Concomitant]
  3. IBUPROPHEN [Concomitant]
  4. DOXYCYCLINE [Concomitant]
  5. REMICADE [Suspect]
     Indication: HIDRADENITIS
     Dosage: 5MG/KG IN INDUCTION 1 DOSE
     Route: 042
     Dates: start: 20120321

REACTIONS (3)
  - DIZZINESS [None]
  - PETECHIAE [None]
  - HEADACHE [None]
